FAERS Safety Report 13718700 (Version 1)
Quarter: 2017Q3

REPORT INFORMATION
  Report Type: Spontaneous
  Country: CH (occurrence: CH)
  Receive Date: 20170705
  Receipt Date: 20170705
  Transmission Date: 20171127
  Serious: Yes (Other)
  Sender: FDA-Public Use
  Company Number: CH-LPDUSPRD-20170861

PATIENT
  Age: 18 Year
  Sex: Female

DRUGS (2)
  1. FERINJECT [Suspect]
     Active Substance: FERRIC CARBOXYMALTOSE
     Dosage: 500 MG/UNSPECIFIED DILUTION
     Route: 042
     Dates: start: 20170601
  2. FERINJECT [Suspect]
     Active Substance: FERRIC CARBOXYMALTOSE
     Dosage: 100 MG TWICE/UNKNOWN DILUTION
     Route: 042
     Dates: start: 20170601

REACTIONS (4)
  - Urticaria [Unknown]
  - Erythema [Unknown]
  - Ear swelling [Unknown]
  - Pruritus [Unknown]

NARRATIVE: CASE EVENT DATE: 20170601
